FAERS Safety Report 25259255 (Version 1)
Quarter: 2025Q2

REPORT INFORMATION
  Report Type: Spontaneous
  Country: US (occurrence: US)
  Receive Date: 20250501
  Receipt Date: 20250501
  Transmission Date: 20250717
  Serious: Yes (Hospitalization)
  Sender: INCYTE
  Company Number: US-EVENT-002425

PATIENT

DRUGS (2)
  1. MONJUVI [Suspect]
     Active Substance: TAFASITAMAB-CXIX
     Route: 065
  2. MONJUVI [Suspect]
     Active Substance: TAFASITAMAB-CXIX
     Route: 065

REACTIONS (1)
  - Haematoma [Unknown]
